FAERS Safety Report 13503561 (Version 1)
Quarter: 2017Q2

REPORT INFORMATION
  Report Type: Spontaneous
  Country: US (occurrence: US)
  Receive Date: 20170502
  Receipt Date: 20170502
  Transmission Date: 20170830
  Serious: Yes (Hospitalization)
  Sender: FDA-Public Use
  Company Number: None

PATIENT
  Age: 34 Year
  Sex: Female

DRUGS (8)
  1. DOXAZOSIN [Concomitant]
     Active Substance: DOXAZOSIN\DOXAZOSIN MESYLATE
  2. ALPRAZOLAM. [Concomitant]
     Active Substance: ALPRAZOLAM
  3. CLONIDINE. [Concomitant]
     Active Substance: CLONIDINE
  4. PREDNISONE. [Concomitant]
     Active Substance: PREDNISONE
  5. MAG OX [Concomitant]
     Active Substance: MAGNESIUM OXIDE
  6. TORSEMIDE. [Concomitant]
     Active Substance: TORSEMIDE
  7. FUROSEMIDE. [Concomitant]
     Active Substance: FUROSEMIDE
  8. TACROLIMUS 1MG SANDOZ [Suspect]
     Active Substance: TACROLIMUS
     Indication: RENAL TRANSPLANT
     Dosage: 1MG AM+PM PO
     Route: 048
     Dates: start: 20150601

REACTIONS (1)
  - Cardiac failure congestive [None]

NARRATIVE: CASE EVENT DATE: 20170417
